FAERS Safety Report 9492883 (Version 2)
Quarter: 2013Q3

REPORT INFORMATION
  Report Type: Report from Study
  Country: US (occurrence: US)
  Receive Date: 20130901
  Receipt Date: 20130901
  Transmission Date: 20140515
  Serious: Yes (Hospitalization)
  Sender: FDA-Public Use
  Company Number: US-ROCHE-1255883

PATIENT
  Sex: Male

DRUGS (2)
  1. XELODA [Suspect]
     Indication: COLORECTAL CANCER METASTATIC
     Dosage: EVERY AM AND PM
     Route: 048
     Dates: start: 20130619
  2. PLAVIX [Concomitant]
     Indication: CAROTID ARTERY STENT INSERTION

REACTIONS (2)
  - Erythema [Not Recovered/Not Resolved]
  - Blood sodium decreased [Recovered/Resolved]
